FAERS Safety Report 7786564-9 (Version None)
Quarter: 2011Q3

REPORT INFORMATION
  Report Type: 
  Country: None (occurrence: None)
  Receive Date: 20110929
  Receipt Date: 20110919
  Transmission Date: 20111222
  Serious: Yes (Hospitalization)
  Sender: FDA-Public Use
  Company Number: CA-GLAXOSMITHKLINE-B0750973A

PATIENT
  Age: 83 Year
  Sex: Male

DRUGS (12)
  1. CLARITHROMYCIN [Suspect]
     Indication: PNEUMONIA
     Dosage: 500MG TWICE PER DAY
     Route: 048
  2. FUROSEMIDE [Concomitant]
  3. DIGOXIN [Suspect]
     Indication: MYOCARDIAL INFARCTION
     Dosage: .125MG PER DAY
     Route: 048
  4. BISOPROLOL FUMARATE [Concomitant]
  5. POTASSIUM [Concomitant]
  6. POTASSIUM [Concomitant]
  7. ISOSORBIDE MONONITRATE [Concomitant]
  8. CAPTOPRIL [Concomitant]
  9. PRAVASTATIN [Concomitant]
  10. FUROSEMIDE [Concomitant]
  11. SPIRONOLACTONE [Concomitant]
     Route: 048
  12. BISOPROLOL FUMARATE [Concomitant]

REACTIONS (9)
  - NAUSEA [None]
  - DECREASED APPETITE [None]
  - DIZZINESS [None]
  - TOXICITY TO VARIOUS AGENTS [None]
  - FATIGUE [None]
  - DYSPNOEA [None]
  - DRUG INTERACTION [None]
  - DEHYDRATION [None]
  - COUGH [None]
